FAERS Safety Report 8802282 (Version 1)
Quarter: 2012Q4

REPORT INFORMATION
  Report Type: Report from Study
  Country: CA (occurrence: CA)
  Receive Date: 20120921
  Receipt Date: 20120921
  Transmission Date: 20130627
  Serious: Yes (Other)
  Sender: FDA-Public Use
  Company Number: CA-ROCHE-1131811

PATIENT
  Age: 61 Year
  Sex: Female
  Weight: 62.65 kg

DRUGS (1)
  1. MABTHERA [Suspect]
     Indication: RHEUMATOID ARTHRITIS
     Route: 042
     Dates: end: 20091203

REACTIONS (4)
  - Throat irritation [Recovered/Resolved]
  - Nasal congestion [Recovered/Resolved]
  - Increased upper airway secretion [Recovered/Resolved]
  - Headache [Recovering/Resolving]
